FAERS Safety Report 19971856 (Version 2)
Quarter: 2021Q4

REPORT INFORMATION
  Report Type: Spontaneous
  Country: GB (occurrence: GB)
  Receive Date: 20211019
  Receipt Date: 20211219
  Transmission Date: 20220304
  Serious: Yes (Hospitalization, Other)
  Sender: FDA-Public Use
  Company Number: GB-SANOFI-00814009

PATIENT
  Age: 47 Year
  Sex: Female

DRUGS (2)
  1. FEXOFENADINE HYDROCHLORIDE [Suspect]
     Active Substance: FEXOFENADINE HYDROCHLORIDE
     Indication: Product used for unknown indication
     Dosage: 30 MG, TID
     Route: 048
  2. FEXOFENADINE HYDROCHLORIDE [Suspect]
     Active Substance: FEXOFENADINE HYDROCHLORIDE
     Dosage: 0.5 DF
     Route: 065

REACTIONS (5)
  - Vomiting [Unknown]
  - Drug dependence [Unknown]
  - Malaise [Unknown]
  - Wrong technique in product usage process [Unknown]
  - Intentional product misuse [Unknown]
